FAERS Safety Report 12119183 (Version 1)
Quarter: 2016Q1

REPORT INFORMATION
  Report Type: Spontaneous
  Country: US (occurrence: US)
  Receive Date: 20160226
  Receipt Date: 20160226
  Transmission Date: 20160526
  Serious: No
  Sender: FDA-Public Use
  Company Number: US-PURDUE-USA-2016-0128267

PATIENT
  Sex: Female

DRUGS (1)
  1. HYSINGLA ER [Suspect]
     Active Substance: HYDROCODONE BITARTRATE
     Indication: BACK PAIN
     Route: 048

REACTIONS (5)
  - Swelling [Recovered/Resolved]
  - Somnolence [Recovered/Resolved]
  - Hypopnoea [Recovered/Resolved]
  - Feeling abnormal [Recovered/Resolved]
  - Rash [Recovered/Resolved]
